FAERS Safety Report 24527200 (Version 1)
Quarter: 2024Q4

REPORT INFORMATION
  Report Type: Report from Study
  Country: US (occurrence: US)
  Receive Date: 20241021
  Receipt Date: 20241021
  Transmission Date: 20250114
  Serious: No
  Sender: ROCHE
  Company Number: US-ROCHE-3413298

PATIENT
  Age: 83 Year
  Sex: Female

DRUGS (2)
  1. COTELLIC [Suspect]
     Active Substance: COBIMETINIB
     Indication: Neoplasm malignant
     Dosage: TAKE 1 TABLET BY MOUTH EVERY DAY FOR 21 DAYS THEN STOP FOR 7 DAYS
     Route: 048
  2. COTELLIC [Suspect]
     Active Substance: COBIMETINIB
     Indication: Histiocytosis

REACTIONS (1)
  - Dyspnoea [Unknown]
